FAERS Safety Report 4666658-7 (Version None)
Quarter: 2005Q2

REPORT INFORMATION
  Report Type: 
  Country: None (occurrence: None)
  Receive Date: 20050518
  Receipt Date: 20050506
  Transmission Date: 20051028
  Serious: Yes (Hospitalization, Other)
  Sender: FDA-Public Use
  Company Number: KII-2005-0016534

PATIENT
  Age: 37 Year
  Sex: Female

DRUGS (5)
  1. OXYCONTIN [Suspect]
     Indication: PAIN
     Dosage: UNK, ORAL
     Route: 048
  2. CYCLOBENZAPRINE HCL [Suspect]
     Dosage: UNK, ORAL
     Route: 048
  3. HYDROCODONE BITARTRATE + ACETAMINOPHEN [Suspect]
     Dosage: UNK, ORAL
     Route: 048
  4. ETHANOL (ETHANOL) [Suspect]
     Dosage: UNK, ORAL
     Route: 048
  5. TRICYCLIC ANTIDEPRESSANTS [Suspect]
     Dosage: UNK
     Route: 065

REACTIONS (10)
  - AGITATION [None]
  - CYANOSIS [None]
  - DEPRESSED LEVEL OF CONSCIOUSNESS [None]
  - DRUG SCREEN POSITIVE [None]
  - HEART RATE INCREASED [None]
  - MULTIPLE DRUG OVERDOSE [None]
  - PUPILLARY REFLEX IMPAIRED [None]
  - RESPIRATORY RATE DECREASED [None]
  - SNORING [None]
  - SOMNOLENCE [None]
